FAERS Safety Report 12756380 (Version 2)
Quarter: 2016Q4

REPORT INFORMATION
  Report Type: Report from Study
  Country: ZA (occurrence: ZA)
  Receive Date: 20160916
  Receipt Date: 20161019
  Transmission Date: 20170207
  Serious: Yes (Death, Hospitalization, Other)
  Sender: FDA-Public Use
  Company Number: ZA-GILEAD-2016-0232533

PATIENT
  Age: 20 Year
  Sex: Male
  Weight: 41 kg

DRUGS (5)
  1. COTRIMOXAZOLE [Concomitant]
     Active Substance: SULFAMETHOXAZOLE\TRIMETHOPRIM
     Indication: PROPHYLAXIS
     Dosage: 960 MG, UNK
     Route: 048
     Dates: start: 20140729
  2. BLOOD [Concomitant]
     Active Substance: WHOLE BLOOD
     Dosage: UNK
  3. EFAVIRENZ/EMTRICITABINE/TENOFOVIR DISOPROXIL FUMARATE [Suspect]
     Active Substance: EFAVIRENZ\EMTRICITABINE\TENOFOVIR DISOPROXIL FUMARATE
     Indication: HIV INFECTION
     Dosage: 1 DF, UNK
     Route: 048
     Dates: start: 20140731
  4. POTASSIUM [Concomitant]
     Active Substance: POTASSIUM
     Indication: HYPOKALAEMIA
     Dosage: 600 MG, UNK
     Route: 048
     Dates: start: 20140731
  5. MULTIVITAMINS                      /00116001/ [Concomitant]
     Dosage: 1 DF, UNK
     Route: 048
     Dates: start: 20140731

REACTIONS (3)
  - Tuberculosis gastrointestinal [Fatal]
  - Malnutrition [Unknown]
  - Gastroenteritis [Not Recovered/Not Resolved]

NARRATIVE: CASE EVENT DATE: 20140801
